FAERS Safety Report 5389151-5 (Version None)
Quarter: 2007Q3

REPORT INFORMATION
  Report Type: 
  Country: None (occurrence: None)
  Receive Date: 20070713
  Receipt Date: 20070713
  Transmission Date: 20080115
  Serious: Yes (Hospitalization)
  Sender: FDA-Public Use
  Company Number: None

PATIENT
  Age: 60 Year
  Sex: Female

DRUGS (3)
  1. PHOSPHOSODA FLAVOR NOT SPECIFIED [Suspect]
     Indication: COLONOSCOPY
     Dosage: 90 ML; PO
     Route: 048
     Dates: start: 20070410, end: 20070410
  2. LEVOTHYROXINE SODIUM [Concomitant]
  3. OLMESARTAN MEDOXOMIL [Concomitant]

REACTIONS (2)
  - RENAL DISORDER [None]
  - RENAL FAILURE ACUTE [None]
